FAERS Safety Report 4647988-1 (Version None)
Quarter: 2005Q2

REPORT INFORMATION
  Report Type: 
  Country: None (occurrence: None)
  Receive Date: 20050331
  Receipt Date: 20050119
  Transmission Date: 20051028
  Serious: No
  Sender: FDA-Public Use
  Company Number: 05P-163-0287367

PATIENT
  Age: 77 Year
  Sex: Male

DRUGS (6)
  1. HUMIRA [Suspect]
     Indication: RHEUMATOID ARTHRITIS
     Dosage: 40 MG, 1 IN 2 WK, SUBCUTANEOUS
     Route: 058
     Dates: start: 20030101
  2. LEFLUNOMIDE [Concomitant]
  3. COCHESIN [Concomitant]
  4. PREDNISONE [Concomitant]
  5. PLATAL [Concomitant]
  6. ALBUTEROL SULFATE HFA [Concomitant]

REACTIONS (3)
  - DIARRHOEA [None]
  - HYPOAESTHESIA [None]
  - PARAESTHESIA [None]
